FAERS Safety Report 26029708 (Version 1)
Quarter: 2025Q4

REPORT INFORMATION
  Report Type: Spontaneous
  Country: CN (occurrence: CN)
  Receive Date: 20251112
  Receipt Date: 20251112
  Transmission Date: 20260117
  Serious: Yes (Hospitalization)
  Sender: ABBVIE
  Company Number: CN-ABBVIE-6534955

PATIENT
  Age: 39 Year
  Sex: Female

DRUGS (3)
  1. VENETOCLAX [Suspect]
     Active Substance: VENETOCLAX
     Indication: Acute myeloid leukaemia
     Dosage: 200 MILLIGRAM?DAY 1-7
     Route: 048
     Dates: start: 20251013, end: 20251019
  2. CYTARABINE [Suspect]
     Active Substance: CYTARABINE
     Indication: Targeted cancer therapy
     Dosage: 3 GRAM?INTRAVENOUS DRIP?1.5G EVERY 12 HOURS IVGTT (DAY1, DAY3 AND DAY6)
     Route: 042
     Dates: start: 20251013, end: 20251018
  3. SODIUM CHLORIDE [Concomitant]
     Active Substance: SODIUM CHLORIDE
     Indication: Targeted cancer therapy
     Dosage: 1000 ML?INTRAVENOUS DRIP?0.9% SODIUM CHLORIDE INJECTION 500ML
     Dates: start: 20251013, end: 20251018

REACTIONS (4)
  - Myelosuppression [Recovering/Resolving]
  - Fatigue [Unknown]
  - Pyrexia [Unknown]
  - Dizziness [Unknown]

NARRATIVE: CASE EVENT DATE: 20251021
